FAERS Safety Report 5321597-3 (Version None)
Quarter: 2007Q2

REPORT INFORMATION
  Report Type: 
  Country: None (occurrence: None)
  Receive Date: 20070510
  Receipt Date: 20070430
  Transmission Date: 20071010
  Serious: Yes (Death)
  Sender: FDA-Public Use
  Company Number: US-ROCHE-482036

PATIENT
  Age: 85 Year
  Sex: Male
  Weight: 59.9 kg

DRUGS (1)
  1. BONIVA [Suspect]
     Indication: OSTEOPOROSIS
     Dosage: PATIENT TOOK MONTHLY IBANDRONIC ACID.
     Route: 065
     Dates: end: 20061012

REACTIONS (3)
  - ELDERLY [None]
  - PNEUMONIA [None]
  - RESPIRATORY FAILURE [None]
